FAERS Safety Report 23175656 (Version 1)
Quarter: 2023Q4

REPORT INFORMATION
  Report Type: Spontaneous
  Country: GB (occurrence: GB)
  Receive Date: 20231113
  Receipt Date: 20231113
  Transmission Date: 20240110
  Serious: Yes (Hospitalization)
  Sender: FDA-Public Use
  Company Number: GB-AMGEN-GBRSP2023200715

PATIENT
  Sex: Female

DRUGS (1)
  1. ARANESP [Suspect]
     Active Substance: DARBEPOETIN ALFA
     Indication: Renal failure
     Dosage: UNK, Q4WK (80 MICROGRAM PER 0.4 MILLILITER (ROUTE: INJECTION)
     Route: 065

REACTIONS (1)
  - Hospitalisation [Not Recovered/Not Resolved]
